FAERS Safety Report 19263185 (Version 1)
Quarter: 2021Q2

REPORT INFORMATION
  Report Type: Spontaneous
  Country: DE (occurrence: DE)
  Receive Date: 20210517
  Receipt Date: 20210517
  Transmission Date: 20210717
  Serious: No
  Sender: FDA-Public Use
  Company Number: DE-ALKEM LABORATORIES LIMITED-DE-ALKEM-2021-01154

PATIENT
  Age: 34 Year
  Sex: Female

DRUGS (5)
  1. RITALINIC ACID [Suspect]
     Active Substance: METHYLPHENIDATE ACID
     Indication: PRODUCT USED FOR UNKNOWN INDICATION
     Dosage: UNK
     Route: 065
  2. LORAZEPAM. [Suspect]
     Active Substance: LORAZEPAM
     Indication: PRODUCT USED FOR UNKNOWN INDICATION
     Dosage: UNK
     Route: 065
  3. ALPHA?PYRROLIDINOPENTIOTHIOPHENONE [Suspect]
     Active Substance: .ALPHA.-PYRROLIDINOVALEROTHIOPHENONE
     Indication: PRODUCT USED FOR UNKNOWN INDICATION
     Dosage: UNK
     Route: 065
  4. PREGABALIN. [Suspect]
     Active Substance: PREGABALIN
     Indication: PRODUCT USED FOR UNKNOWN INDICATION
     Dosage: UNK
     Route: 065
  5. ALCOHOL. [Suspect]
     Active Substance: ALCOHOL
     Indication: PRODUCT USED FOR UNKNOWN INDICATION
     Dosage: UNK
     Route: 065

REACTIONS (11)
  - Perseveration [Unknown]
  - Nervousness [Unknown]
  - Mydriasis [Unknown]
  - Agitation [Unknown]
  - Restlessness [Unknown]
  - Logorrhoea [Unknown]
  - Dysarthria [Unknown]
  - Disturbance in attention [Unknown]
  - Bradyphrenia [Unknown]
  - Fine motor skill dysfunction [Unknown]
  - Vestibular disorder [Unknown]
